FAERS Safety Report 8074003-2 (Version None)
Quarter: 2012Q1

REPORT INFORMATION
  Report Type: 
  Country: None (occurrence: None)
  Receive Date: 20120126
  Receipt Date: 20120118
  Transmission Date: 20120608
  Serious: Yes (Hospitalization)
  Sender: FDA-Public Use
  Company Number: US-ELI_LILLY_AND_COMPANY-US201201006040

PATIENT

DRUGS (1)
  1. HUMALOG MIX 75/25 [Suspect]
     Dosage: UNK UNK, UNKNOWN
     Route: 065

REACTIONS (1)
  - HOSPITALISATION [None]
